FAERS Safety Report 23485414 (Version 1)
Quarter: 2024Q1

REPORT INFORMATION
  Report Type: Spontaneous
  Country: US (occurrence: US)
  Receive Date: 20240206
  Receipt Date: 20240206
  Transmission Date: 20240410
  Serious: No
  Sender: FDA-Public Use
  Company Number: US-SA-SAC20240130000919

PATIENT
  Age: 57 Year
  Sex: Female

DRUGS (1)
  1. DUPIXENT [Suspect]
     Active Substance: DUPILUMAB
     Indication: Neurodermatitis
     Dosage: 300 MG, QOW
     Route: 058

REACTIONS (7)
  - Eyelid thickening [Unknown]
  - Diplopia [Unknown]
  - Condition aggravated [Unknown]
  - Rash macular [Not Recovered/Not Resolved]
  - Dry eye [Unknown]
  - Injection site rash [Not Recovered/Not Resolved]
  - Injection site pain [Unknown]
